FAERS Safety Report 10020808 (Version 1)
Quarter: 2013Q4

REPORT INFORMATION
  Report Type: Spontaneous
  Country: JP (occurrence: None)
  Receive Date: 20131203
  Receipt Date: 20131203
  Transmission Date: 20140711
  Serious: Yes (Life-Threatening)
  Sender: FDA-Public Use
  Company Number: JP-20130094

PATIENT
  Age: 5 Day
  Sex: Male

DRUGS (1)
  1. LIPIODOL [Suspect]
     Indication: HYSTEROSALPINGOGRAM
     Route: 064

REACTIONS (2)
  - Hypothyroidism [None]
  - Maternal exposure before pregnancy [None]
